FAERS Safety Report 9517050 (Version 1)
Quarter: 2013Q1

REPORT INFORMATION
  Report Type: Spontaneous
  Country: US (occurrence: None)
  Receive Date: 20130305
  Receipt Date: 20130305
  Transmission Date: 20140127
  Serious: Yes (Other)
  Sender: FDA-Public Use
  Company Number: 163-21880-12113496

PATIENT
  Age: 62 Year
  Sex: Female
  Weight: 76.2 kg

DRUGS (21)
  1. REVLIMID [Suspect]
     Indication: PLASMA CELL MYELOMA
     Route: 048
     Dates: start: 201104
  2. LEVOFLOXACIN [Concomitant]
  3. OXYCODONE [Concomitant]
  4. ACYCLOVIR [Concomitant]
  5. PENICILLIN [Concomitant]
  6. ESCITALOPRAM [Concomitant]
  7. POTASSIUM CHLORIDE [Concomitant]
  8. INSULIN GLARGINE [Concomitant]
  9. METOPROLOL [Concomitant]
  10. TRAZADONE [Concomitant]
  11. CYCLOBENZAPRINE [Concomitant]
  12. ZOLPIDEM [Concomitant]
  13. INSULIN ASPART [Concomitant]
  14. PREGABALIN [Concomitant]
  15. MAGNESIUM OXIDE [Concomitant]
  16. CYCLOSPORINE [Concomitant]
  17. ACETAMINOPHEN (PARACETAMOL) [Concomitant]
  18. ESOMEPRAZOLE [Concomitant]
  19. LORAZEPAM [Concomitant]
  20. CALCIUM + VITAMIN D (LEKOVIT CA) [Concomitant]
  21. ZOLEDRONIC ACID [Concomitant]

REACTIONS (2)
  - Pancytopenia [None]
  - Leukopenia [None]
